FAERS Safety Report 7737102-8 (Version None)
Quarter: 2011Q3

REPORT INFORMATION
  Report Type: 
  Country: None (occurrence: None)
  Receive Date: 20110908
  Receipt Date: 20110831
  Transmission Date: 20111222
  Serious: Yes (Other)
  Sender: FDA-Public Use
  Company Number: US-JNJFOC-20110901442

PATIENT

DRUGS (3)
  1. VELCADE [Suspect]
     Indication: DIFFUSE LARGE B-CELL LYMPHOMA
     Dosage: DAYS 1, 4, 8 AND 11 EVERY 21 DAYS
     Route: 042
  2. RITUXAN [Suspect]
     Indication: DIFFUSE LARGE B-CELL LYMPHOMA
     Dosage: DAY 8 EVERY 21 DAYS
     Route: 042
  3. DOXORUBICIN HCL [Suspect]
     Indication: DIFFUSE LARGE B-CELL LYMPHOMA
     Dosage: DAY 1 EVERY 21 DAYS
     Route: 042

REACTIONS (1)
  - ACUTE PRERENAL FAILURE [None]
